FAERS Safety Report 11315640 (Version 1)
Quarter: 2015Q3

REPORT INFORMATION
  Report Type: Spontaneous
  Country: US (occurrence: US)
  Receive Date: 20150728
  Receipt Date: 20150728
  Transmission Date: 20151125
  Serious: No
  Sender: FDA-Public Use
  Company Number: US-ASTRAZENECA-2015SE70216

PATIENT
  Age: 13783 Day
  Sex: Male
  Weight: 88.5 kg

DRUGS (1)
  1. OMEPRAZOLE OTC [Suspect]
     Active Substance: OMEPRAZOLE
     Indication: GASTROOESOPHAGEAL REFLUX DISEASE
     Route: 048
     Dates: start: 20150713, end: 20150715

REACTIONS (2)
  - Urticaria [Unknown]
  - Dyspepsia [Unknown]

NARRATIVE: CASE EVENT DATE: 20150713
